FAERS Safety Report 6090305-3 (Version None)
Quarter: 2009Q1

REPORT INFORMATION
  Report Type: 
  Country: None (occurrence: None)
  Receive Date: 20090220
  Receipt Date: 20090206
  Transmission Date: 20090719
  Serious: Yes (Hospitalization)
  Sender: FDA-Public Use
  Company Number: 6049096

PATIENT
  Age: 66 Year
  Sex: Female

DRUGS (1)
  1. MAINTATE             (BISOPROLOL FUMARATE) [Suspect]
     Indication: ATRIAL FIBRILLATION
     Dosage: (2.5 MG)
     Route: 048
     Dates: start: 20090127, end: 20090129

REACTIONS (1)
  - DRUG ERUPTION [None]
